FAERS Safety Report 5337167-7 (Version None)
Quarter: 2007Q2

REPORT INFORMATION
  Report Type: 
  Country: None (occurrence: None)
  Receive Date: 20070315
  Receipt Date: 20060908
  Transmission Date: 20071010
  Serious: Yes (Other)
  Sender: FDA-Public Use
  Company Number: PHEH2006US10167

PATIENT
  Sex: Female

DRUGS (2)
  1. TRILEPTAL [Suspect]
     Indication: CONVULSION
     Dosage: 300 MG BID UNK ; 600 MG BID UNK
     Dates: start: 20060701, end: 20060701
  2. TRILEPTAL [Suspect]
     Indication: CONVULSION
     Dosage: 300 MG BID UNK ; 600 MG BID UNK
     Dates: start: 20060701, end: 20060701

REACTIONS (3)
  - LIVER FUNCTION TEST ABNORMAL [None]
  - PYREXIA [None]
  - RASH [None]
